FAERS Safety Report 12330380 (Version 1)
Quarter: 2016Q2

REPORT INFORMATION
  Report Type: Spontaneous
  Country: BG (occurrence: BG)
  Receive Date: 20160504
  Receipt Date: 20160504
  Transmission Date: 20160815
  Serious: Yes (Hospitalization)
  Sender: FDA-Public Use
  Company Number: BG-ASTRAZENECA-2016SE46807

PATIENT
  Age: 64 Year
  Sex: Male

DRUGS (4)
  1. SYMBICORT [Suspect]
     Active Substance: BUDESONIDE\FORMOTEROL FUMARATE DIHYDRATE
     Indication: ASTHMA
     Dosage: 160 MCG/4.5 MCG 2 X 1 INHALATION MAINTENANCE THERAPY
     Route: 055
  2. BUTOASMA [Concomitant]
     Dosage: 100 MCG X 1 INHALATIONS RELIEVER THERAPY.
     Route: 055
  3. BUTOASMA [Concomitant]
     Dosage: 100 MCG X 2 INHALATIONS RELIEVER THERAPY
     Route: 055
  4. SYMBICORT [Suspect]
     Active Substance: BUDESONIDE\FORMOTEROL FUMARATE DIHYDRATE
     Indication: ASTHMA
     Dosage: 160 MCG/4.5 MCG 2 X 2 INHALATIONS MAINTENANCE THERAPY
     Route: 055

REACTIONS (1)
  - Asthma [Unknown]
